FAERS Safety Report 7678424-9 (Version None)
Quarter: 2011Q3

REPORT INFORMATION
  Report Type: 
  Country: None (occurrence: None)
  Receive Date: 20110811
  Receipt Date: 20110808
  Transmission Date: 20111222
  Serious: Yes (Hospitalization, Congenital Anomaly, Other)
  Sender: FDA-Public Use
  Company Number: US-PFIZER INC-2010128181

PATIENT
  Sex: Male
  Weight: 3.92 kg

DRUGS (11)
  1. ZOLOFT [Suspect]
     Indication: DEPRESSION
     Dosage: 50 MG, 1X/DAY
     Route: 064
     Dates: start: 20021007
  2. ZOLOFT [Suspect]
     Indication: PANIC ATTACK
     Dosage: 200 MG, 1X/DAY
     Route: 064
     Dates: start: 20060816, end: 20091207
  3. KEFLEX [Concomitant]
     Dosage: TWO CAPSULES BY ORAL ROUTE EVERY 12 HR
     Route: 064
     Dates: start: 20070103
  4. VISTARIL [Concomitant]
     Dosage: 50 MG, 4X/DAY
     Route: 064
     Dates: start: 20071008
  5. FERROUS SULFATE [Concomitant]
     Dosage: 325 MG, 3X/DAY
     Route: 064
     Dates: start: 20080212
  6. ZOLOFT [Suspect]
     Indication: ANXIETY
     Dosage: 100 MG, UNK
     Route: 064
     Dates: start: 20040920
  7. ATIVAN [Concomitant]
     Dosage: 1 MG, 2X/DAY
     Route: 064
  8. ZOLOFT [Suspect]
     Indication: OBSESSIVE-COMPULSIVE DISORDER
     Dosage: 100 MG, 1X/DAY
     Route: 064
     Dates: start: 20050921, end: 20060816
  9. ZOLOFT [Suspect]
     Dosage: 25 MG, UNK
     Route: 064
     Dates: start: 20070312
  10. PRENATAL VITAMINS [Concomitant]
     Dosage: UNK
     Route: 064
  11. RHOGAM [Concomitant]
     Dosage: UNK
     Route: 064

REACTIONS (21)
  - MATERNAL EXPOSURE DURING PREGNANCY [None]
  - HYPOPLASTIC RIGHT HEART SYNDROME [None]
  - EBSTEIN'S ANOMALY [None]
  - TRICUSPID VALVE INCOMPETENCE [None]
  - LUNG HYPERINFLATION [None]
  - CARDIOMEGALY [None]
  - VENTRICULAR SEPTAL DEFECT [None]
  - DEHYDRATION [None]
  - CONGENITAL PULMONARY VALVE ATRESIA [None]
  - RESPIRATORY TRACT INFECTION VIRAL [None]
  - KYPHOSIS CONGENITAL [None]
  - OTITIS MEDIA [None]
  - PATENT DUCTUS ARTERIOSUS [None]
  - CONGENITAL PNEUMONIA [None]
  - HYPOTHERMIA NEONATAL [None]
  - VIRAL RASH [None]
  - UPPER RESPIRATORY TRACT INFECTION [None]
  - RESPIRATORY DISTRESS [None]
  - HYPOVOLAEMIA [None]
  - ATRIAL SEPTAL DEFECT [None]
  - METABOLIC ACIDOSIS [None]
